FAERS Safety Report 22218713 (Version 2)
Quarter: 2023Q2

REPORT INFORMATION
  Report Type: Report from Study
  Country: CA (occurrence: CA)
  Receive Date: 20230417
  Receipt Date: 20230427
  Transmission Date: 20230722
  Serious: Yes (Death)
  Sender: FDA-Public Use
  Company Number: CA-HLS-202300817

PATIENT
  Age: 72 Year
  Sex: Female
  Weight: 60 kg

DRUGS (21)
  1. CLOZARIL [Suspect]
     Active Substance: CLOZAPINE
     Indication: Schizophrenia
     Route: 048
     Dates: start: 20171125, end: 20230219
  2. CLOZARIL [Suspect]
     Active Substance: CLOZAPINE
     Indication: Product used for unknown indication
     Route: 048
     Dates: start: 20171125, end: 20230219
  3. CLOZARIL [Suspect]
     Active Substance: CLOZAPINE
     Indication: Schizophrenia
     Dosage: 25MG HS
     Route: 048
     Dates: start: 20171125
  4. CLOZARIL [Suspect]
     Active Substance: CLOZAPINE
     Indication: Product used for unknown indication
     Dosage: 25MG HS
     Route: 048
     Dates: start: 20171125
  5. METFORMIN [Concomitant]
     Active Substance: METFORMIN HYDROCHLORIDE
     Indication: Product used for unknown indication
     Dosage: 500MG; TAKE 1 TABLET TWICE DAILY
     Route: 065
  6. ASPIRIN [Concomitant]
     Active Substance: ASPIRIN
     Indication: Product used for unknown indication
     Dosage: 81MG; TAKE 1 TABLET ONCE DAILY
     Route: 065
  7. DIVALPROEX SODIUM [Concomitant]
     Active Substance: DIVALPROEX SODIUM
     Indication: Product used for unknown indication
     Dosage: 500MG; TAKE ONE AT BEDTIME
     Route: 065
  8. Swiss Vitamin B12 super 180 [Concomitant]
     Indication: Product used for unknown indication
     Dosage: 1000MCG TABLET; TAKE 1 TABLET ONCE A DAY
     Route: 065
  9. OXAZEPAM [Concomitant]
     Active Substance: OXAZEPAM
     Indication: Product used for unknown indication
     Dosage: 15MG; TAKE 1 TABLET ONCE A DAY AT BEDTIME
     Route: 065
  10. SERTRALINE [Concomitant]
     Active Substance: SERTRALINE HYDROCHLORIDE
     Indication: Product used for unknown indication
     Dosage: 50MG 1 CAPSULE ONCE DAILY
     Route: 065
  11. One touch ultra [Concomitant]
     Indication: Product used for unknown indication
     Dosage: ONE TOUCH ULTRA, BLUE #022-90X, BAN STRIP; USE THESE STRIPS WITH GLUCOMETER
     Route: 065
  12. Nicorette INH recharge [Concomitant]
     Indication: Product used for unknown indication
     Dosage: 10MG/CART; TAKE AS PRESCRIBED IF NEEDED
     Route: 065
  13. Lancets - one touch delica plus [Concomitant]
     Indication: Product used for unknown indication
     Dosage: 30G NEEDLE; USE LANCETS WITH COLLECTION SYSTEM, ONE TOUCH DELICA
     Route: 065
  14. ACETAMINOPHEN [Concomitant]
     Active Substance: ACETAMINOPHEN
     Indication: Product used for unknown indication
     Dosage: 500MG; TAKE 1 TABLET 4 TIMES DAILY IF NEEDED
     Route: 065
  15. RIVASTIGMINE TARTRATE [Concomitant]
     Active Substance: RIVASTIGMINE TARTRATE
     Indication: Product used for unknown indication
     Dosage: 6MG; TAKE 1 CAPSULE 2 TIMES A DAY
     Route: 065
  16. PANTOPRAZOLE [Concomitant]
     Active Substance: PANTOPRAZOLE
     Indication: Product used for unknown indication
     Dosage: 40MG; TAKE 1 TABLET 1 TIME PER DAY BEFORE A MEAL
     Route: 065
  17. RISPERDAL [Concomitant]
     Active Substance: RISPERIDONE
     Indication: Product used for unknown indication
     Dosage: 1MG BID
     Route: 065
  18. TUMS antacid regular [Concomitant]
     Indication: Product used for unknown indication
     Dosage: 500MG; TAKE AS DIRECTED
     Route: 065
  19. LOPERAMIDE [Concomitant]
     Active Substance: LOPERAMIDE
     Indication: Product used for unknown indication
     Dosage: 2MG CAPLET; TAKE 1 TABLET TWICE DAILY IF NEEDED
     Route: 065
  20. Alcohol swabs [Concomitant]
     Indication: Product used for unknown indication
     Dosage: USE AS DIRECTED
     Route: 065
  21. Undergarment super +, x-large, panty [Concomitant]
     Indication: Product used for unknown indication
     Dosage: USE AS DIRECTED
     Route: 065

REACTIONS (2)
  - Death [Fatal]
  - Foster care [Unknown]

NARRATIVE: CASE EVENT DATE: 20230219
